FAERS Safety Report 4491706-7 (Version None)
Quarter: 2004Q4

REPORT INFORMATION
  Report Type: 
  Country: None (occurrence: None)
  Receive Date: 20041101
  Receipt Date: 20041025
  Transmission Date: 20050328
  Serious: Yes (Other)
  Sender: FDA-Public Use
  Company Number: 2004-10-1534

PATIENT
  Age: 58 Year
  Sex: Male

DRUGS (6)
  1. PEG-INTRON [Suspect]
     Indication: HEPATITIS C
     Dosage: 80 UG QW SUBCUTANEOUS
     Route: 058
  2. REBETOL [Suspect]
     Indication: HEPATITIS C
     Dosage: 600 MG QD ORAL
     Route: 048
  3. NORVASC [Concomitant]
  4. OMEPRAZOLE [Concomitant]
  5. NEORAL [Concomitant]
  6. SEROPRAM (CITALOPRAM HBR) [Concomitant]

REACTIONS (1)
  - HEPATIC ARTERY STENOSIS [None]
